FAERS Safety Report 7283703-3 (Version None)
Quarter: 2011Q1

REPORT INFORMATION
  Report Type: 
  Country: None (occurrence: None)
  Receive Date: 20110209
  Receipt Date: 20110131
  Transmission Date: 20110831
  Serious: Yes (Hospitalization)
  Sender: FDA-Public Use
  Company Number: AR-ROCHE-736455

PATIENT
  Sex: Male

DRUGS (2)
  1. CYCLOSPORINE [Suspect]
     Route: 048
     Dates: start: 20061212
  2. MYCOPHENOLATE MOFETIL [Suspect]
     Route: 065
     Dates: start: 20061210

REACTIONS (1)
  - EXTREMITY NECROSIS [None]
